FAERS Safety Report 6581937-4 (Version None)
Quarter: 2010Q1

REPORT INFORMATION
  Report Type: 
  Country: None (occurrence: None)
  Receive Date: 20100215
  Receipt Date: 20100203
  Transmission Date: 20100710
  Serious: No
  Sender: FDA-Public Use
  Company Number: FR-ELI_LILLY_AND_COMPANY-FR200912002054

PATIENT
  Age: 68 Year
  Sex: Female
  Weight: 60 kg

DRUGS (6)
  1. FORTEO [Suspect]
     Indication: OSTEOPOROSIS
     Dosage: 20 UG, DAILY (1/D)
     Route: 058
     Dates: start: 20081015
  2. CELIPROLOL [Concomitant]
     Dosage: 1 D/F, DAILY (1/D)
     Route: 048
  3. COAPROVEL [Concomitant]
     Dosage: 1 D/F, DAILY (1/D)
     Route: 048
  4. SIMVASTATIN [Concomitant]
     Dosage: 1 D/F, DAILY (1/D)
     Route: 048
  5. METFORMIN HCL [Concomitant]
     Dosage: 1 D/F, DAILY (1/D)
     Route: 048
  6. DEDROGYL [Concomitant]
     Dosage: UNK, UNKNOWN
     Route: 048

REACTIONS (1)
  - BRONCHITIS [None]
